FAERS Safety Report 4587224-8 (Version None)
Quarter: 2005Q1

REPORT INFORMATION
  Report Type: 
  Country: None (occurrence: None)
  Receive Date: 20050218
  Receipt Date: 20050210
  Transmission Date: 20050727
  Serious: Yes (Hospitalization, Other)
  Sender: FDA-Public Use
  Company Number: US-GLAXOSMITHKLINE-A0546025A

PATIENT
  Sex: Male
  Weight: 86.4 kg

DRUGS (1)
  1. LAMICTAL [Suspect]
     Indication: ARTHRALGIA

REACTIONS (9)
  - ASTHENIA [None]
  - BLOOD TEST ABNORMAL [None]
  - BONE MARROW DEPRESSION [None]
  - DYSPNOEA [None]
  - IMPAIRED DRIVING ABILITY [None]
  - PALPITATIONS [None]
  - PLATELET COUNT DECREASED [None]
  - SOMNOLENCE [None]
  - WHITE BLOOD CELL COUNT DECREASED [None]
